FAERS Safety Report 5120692-1 (Version None)
Quarter: 2006Q4

REPORT INFORMATION
  Report Type: 
  Country: None (occurrence: None)
  Receive Date: 20061004
  Receipt Date: 20060925
  Transmission Date: 20070319
  Serious: Yes (Hospitalization)
  Sender: FDA-Public Use
  Company Number: DE-BOEHRINGER INGELHEIM PHARMACEUTICALS, INC.-2006-DE-05117DE

PATIENT
  Sex: Female
  Weight: 79 kg

DRUGS (2)
  1. VIRAMUNE [Suspect]
     Indication: HIV INFECTION
     Route: 048
     Dates: start: 20060808, end: 20060822
  2. KIVEXA [Concomitant]
     Indication: HIV INFECTION
     Dosage: 600/300
     Route: 048
     Dates: start: 20060303, end: 20060822

REACTIONS (5)
  - BLOOD CREATINE PHOSPHOKINASE INCREASED [None]
  - CHILLS [None]
  - NAUSEA [None]
  - PYREXIA [None]
  - RASH [None]
